FAERS Safety Report 5262871-9 (Version None)
Quarter: 2007Q1

REPORT INFORMATION
  Report Type: 
  Country: None (occurrence: None)
  Receive Date: 20070312
  Receipt Date: 20070227
  Transmission Date: 20070707
  Serious: Yes (Other)
  Sender: FDA-Public Use
  Company Number: PHBS2007ES04088

PATIENT
  Age: 24 Year
  Sex: Male

DRUGS (1)
  1. TERBINAFINE [Suspect]
     Indication: TINEA CAPITIS
     Dosage: 250 MG, QD (15 DAYS/MTH)
     Route: 048

REACTIONS (5)
  - ASTHENIA [None]
  - BLOOD CREATINE PHOSPHOKINASE INCREASED [None]
  - CHROMATURIA [None]
  - MYALGIA [None]
  - RHABDOMYOLYSIS [None]
